FAERS Safety Report 5520896-X (Version None)
Quarter: 2007Q4

REPORT INFORMATION
  Report Type: 
  Country: None (occurrence: None)
  Receive Date: 20071119
  Receipt Date: 20071114
  Transmission Date: 20080405
  Serious: Yes (Death, Hospitalization)
  Sender: FDA-Public Use
  Company Number: B0495899A

PATIENT
  Age: 44 Year
  Sex: Male

DRUGS (2)
  1. TRIZIVIR [Suspect]
     Indication: HIV INFECTION CDC CATEGORY C3
     Route: 048
     Dates: start: 20070822, end: 20070923
  2. KALETRA [Suspect]
     Indication: HIV INFECTION CDC CATEGORY C3
     Route: 048
     Dates: start: 20070822, end: 20070923

REACTIONS (2)
  - CEREBRAL HAEMORRHAGE [None]
  - COAGULOPATHY [None]
